FAERS Safety Report 9426067 (Version 1)
Quarter: 2013Q3

REPORT INFORMATION
  Report Type: Spontaneous
  Country: CA (occurrence: CA)
  Receive Date: 20130730
  Receipt Date: 20130730
  Transmission Date: 20140515
  Serious: Yes (Other)
  Sender: FDA-Public Use
  Company Number: CA-ROCHE-1253806

PATIENT
  Age: 74 Year
  Sex: Male

DRUGS (12)
  1. NAPROXEN [Suspect]
     Indication: PRODUCT USED FOR UNKNOWN INDICATION
     Route: 065
  2. ACETYLSALICYLIC ACID [Suspect]
     Indication: PRODUCT USED FOR UNKNOWN INDICATION
     Route: 065
  3. XARELTO [Suspect]
     Indication: PRODUCT USED FOR UNKNOWN INDICATION
     Dosage: THERAPY DURATION: 1.0 DAYS
     Route: 065
  4. XARELTO [Suspect]
     Dosage: THERAPY DURATION: 3.0 DAYS
     Route: 048
  5. ALLOPURINOL [Concomitant]
     Route: 065
  6. AMITRIPTYLINE [Concomitant]
     Route: 065
  7. GLYBURIDE [Concomitant]
     Route: 065
  8. PALAFER CF [Concomitant]
     Route: 065
  9. PERCOCET [Concomitant]
     Route: 065
  10. RAMIPRIL [Concomitant]
     Route: 065
  11. VIAGRA [Concomitant]
     Route: 065
  12. ZOCOR [Concomitant]
     Route: 065

REACTIONS (4)
  - Haemoglobin decreased [Recovered/Resolved]
  - Haemorrhage [Recovered/Resolved]
  - International normalised ratio increased [Recovered/Resolved]
  - Prothrombin time prolonged [Recovered/Resolved]
